FAERS Safety Report 7762369-X (Version None)
Quarter: 2011Q3

REPORT INFORMATION
  Report Type: 
  Country: None (occurrence: None)
  Receive Date: 20110919
  Receipt Date: 20110919
  Transmission Date: 20111222
  Serious: No
  Sender: FDA-Public Use
  Company Number: None

PATIENT
  Sex: Female
  Weight: 66.2252 kg

DRUGS (3)
  1. KEPPRA [Concomitant]
  2. CARBAMAZEPINE [Suspect]
     Indication: CONVULSION
     Dosage: CARBAMAZEPRINE 200MG TID ORAL
     Route: 048
     Dates: start: 20100624, end: 20110919
  3. TEGRETOL [Concomitant]

REACTIONS (1)
  - CONVULSION [None]
